FAERS Safety Report 20628192 (Version 2)
Quarter: 2023Q4

REPORT INFORMATION
  Report Type: Report from Study
  Country: JP (occurrence: JP)
  Receive Date: 20220323
  Receipt Date: 20231030
  Transmission Date: 20240109
  Serious: Yes (Death, Other)
  Sender: FDA-Public Use
  Company Number: JP-SA-2022SA097193

PATIENT
  Age: 85 Year
  Sex: Female
  Weight: 47.7 kg

DRUGS (5)
  1. SARILUMAB [Suspect]
     Active Substance: SARILUMAB
     Indication: Rheumatoid arthritis
     Dosage: 200 MG, QOW
     Route: 058
     Dates: start: 20190610, end: 20201204
  2. METHOTREXATE [Concomitant]
     Active Substance: METHOTREXATE
     Indication: Rheumatoid arthritis
     Dosage: 4 MG, QW
     Route: 065
  3. SULFASALAZINE [Concomitant]
     Active Substance: SULFASALAZINE
     Indication: Rheumatoid arthritis
     Dosage: 500 MG, BID
     Route: 065
  4. HYALURONATE SODIUM [Concomitant]
     Active Substance: HYALURONATE SODIUM
     Indication: Arthritis
     Dosage: UNK
     Route: 065
  5. TRIAMCINOLONE [Concomitant]
     Active Substance: TRIAMCINOLONE
     Indication: Arthritis
     Dosage: UNK
     Route: 065

REACTIONS (2)
  - Pneumonia [Fatal]
  - Septic shock [Fatal]

NARRATIVE: CASE EVENT DATE: 20201222
